FAERS Safety Report 18116681 (Version 2)
Quarter: 2020Q3

REPORT INFORMATION
  Report Type: Report from Study
  Country: DE (occurrence: DE)
  Receive Date: 20200805
  Receipt Date: 20200819
  Transmission Date: 20201103
  Serious: Yes (Hospitalization)
  Sender: FDA-Public Use
  Company Number: NVSC2020DE216410

PATIENT
  Age: 64 Year
  Sex: Female
  Weight: 46 kg

DRUGS (2)
  1. TRAMETINIB [Suspect]
     Active Substance: TRAMETINIB
     Indication: BRAF GENE MUTATION
     Dosage: 2 MG
     Route: 065
     Dates: start: 20200414
  2. DABRAFENIB [Suspect]
     Active Substance: DABRAFENIB
     Indication: BRAF GENE MUTATION
     Dosage: 300 MG
     Route: 065
     Dates: start: 20200414

REACTIONS (5)
  - Fibrin D dimer increased [Unknown]
  - Skin infection [Recovered/Resolved]
  - Erythema migrans [Unknown]
  - Erysipelas [Unknown]
  - Wound [Unknown]

NARRATIVE: CASE EVENT DATE: 20200706
